FAERS Safety Report 7507302-0 (Version None)
Quarter: 2011Q2

REPORT INFORMATION
  Report Type: 
  Country: None (occurrence: None)
  Receive Date: 20110526
  Receipt Date: 20110520
  Transmission Date: 20111010
  Serious: Yes (Other)
  Sender: FDA-Public Use
  Company Number: JP-EISAI INC-E2020-09210-SPO-JP

PATIENT
  Age: 91 Year
  Sex: Male

DRUGS (8)
  1. ARICEPT [Suspect]
     Route: 048
     Dates: start: 20071001, end: 20080901
  2. ARICEPT [Suspect]
     Route: 048
     Dates: start: 20081001
  3. URINORM [Concomitant]
     Dosage: UNKNOWN
     Dates: start: 20081001
  4. ALESION [Concomitant]
     Dates: start: 20081001
  5. CANDESARTAN CILEXETIL [Concomitant]
     Dosage: UNKNOWN
     Dates: start: 20081001
  6. EPINASTINE [Concomitant]
     Dosage: UNKNOWN
     Dates: start: 20081001
  7. ARICEPT [Suspect]
     Route: 048
     Dates: start: 20080901, end: 20081001
  8. GRAMALIL [Concomitant]
     Dosage: UNKNOWN
     Route: 048
     Dates: start: 20081001

REACTIONS (3)
  - ELECTROCARDIOGRAM QT PROLONGED [None]
  - EPILEPSY [None]
  - ARRHYTHMIA [None]
